FAERS Safety Report 7764653-2 (Version None)
Quarter: 2011Q3

REPORT INFORMATION
  Report Type: 
  Country: None (occurrence: None)
  Receive Date: 20110921
  Receipt Date: 20110915
  Transmission Date: 20111222
  Serious: Yes (Hospitalization, Other)
  Sender: FDA-Public Use
  Company Number: PHHY2011UY83069

PATIENT
  Age: 58 Year
  Sex: Male

DRUGS (4)
  1. CYTARABINE [Concomitant]
  2. EXJADE [Suspect]
     Dosage: UNK UKN, UNK
  3. FILGRASTIM [Concomitant]
  4. MITOXANTRONE [Concomitant]

REACTIONS (2)
  - HYPOPERFUSION [None]
  - NEUROGENIC SHOCK [None]
